FAERS Safety Report 11269882 (Version 2)
Quarter: 2015Q3

REPORT INFORMATION
  Report Type: Report from Study
  Country: US (occurrence: US)
  Receive Date: 20150714
  Receipt Date: 20150715
  Transmission Date: 20151125
  Serious: Yes (Hospitalization, Other)
  Sender: FDA-Public Use
  Company Number: US-BIOGENIDEC-2015BI056624

PATIENT
  Age: 61 Year
  Sex: Female

DRUGS (14)
  1. CITALOPRAM [Concomitant]
     Active Substance: CITALOPRAM HYDROBROMIDE
  2. WELLBUTRIN [Concomitant]
     Active Substance: BUPROPION HYDROCHLORIDE
  3. ASPIRIN. [Concomitant]
     Active Substance: ASPIRIN
  4. AMLODIPINE [Concomitant]
     Active Substance: AMLODIPINE BESYLATE
  5. ATORVASTATIN [Concomitant]
     Active Substance: ATORVASTATIN
  6. XANAX [Concomitant]
     Active Substance: ALPRAZOLAM
  7. ALBUTEROL. [Concomitant]
     Active Substance: ALBUTEROL
  8. TECFIDERA [Suspect]
     Active Substance: DIMETHYL FUMARATE
     Indication: MULTIPLE SCLEROSIS
     Route: 048
     Dates: start: 20150401
  9. SPIRIVA [Concomitant]
     Active Substance: TIOTROPIUM BROMIDE MONOHYDRATE
  10. TRAZODONE [Concomitant]
     Active Substance: TRAZODONE HYDROCHLORIDE
  11. BUPROPION. [Concomitant]
     Active Substance: BUPROPION
  12. NAPROXEN. [Concomitant]
     Active Substance: NAPROXEN
  13. ESTRADIOL. [Concomitant]
     Active Substance: ESTRADIOL
  14. TECFIDERA [Suspect]
     Active Substance: DIMETHYL FUMARATE
     Indication: MULTIPLE SCLEROSIS
     Route: 048
     Dates: start: 20150325, end: 20150331

REACTIONS (8)
  - Cerebrovascular accident [Unknown]
  - Neuropathy peripheral [Not Recovered/Not Resolved]
  - Increased tendency to bruise [Unknown]
  - Arthritis [Unknown]
  - Abdominal pain upper [Recovered/Resolved]
  - Musculoskeletal pain [Not Recovered/Not Resolved]
  - Diarrhoea [Recovered/Resolved]
  - Pneumonia [Recovered/Resolved]

NARRATIVE: CASE EVENT DATE: 20150423
